FAERS Safety Report 25040693 (Version 1)
Quarter: 2025Q1

REPORT INFORMATION
  Report Type: Spontaneous
  Country: CN (occurrence: CN)
  Receive Date: 20250305
  Receipt Date: 20250305
  Transmission Date: 20250409
  Serious: Yes (Hospitalization)
  Sender: BOEHRINGER INGELHEIM
  Company Number: CN-BoehringerIngelheim-2025-BI-012700

PATIENT
  Age: 71 Year
  Sex: Female

DRUGS (2)
  1. LINAGLIPTIN [Suspect]
     Active Substance: LINAGLIPTIN
     Indication: Blood glucose increased
     Dates: start: 20250220, end: 20250221
  2. REPAGLINIDE [Suspect]
     Active Substance: REPAGLINIDE
     Indication: Blood glucose increased
     Dates: start: 20250220, end: 20250221

REACTIONS (2)
  - Vomiting [Recovered/Resolved]
  - Product use issue [Unknown]

NARRATIVE: CASE EVENT DATE: 20250220
